FAERS Safety Report 11641987 (Version 1)
Quarter: 2015Q4

REPORT INFORMATION
  Report Type: Spontaneous
  Country: US (occurrence: US)
  Receive Date: 20151019
  Receipt Date: 20151019
  Transmission Date: 20160304
  Serious: Yes (Other)
  Sender: FDA-Public Use
  Company Number: US-BAYER-2015-445479

PATIENT
  Age: 84 Year
  Sex: Female
  Weight: 58.96 kg

DRUGS (2)
  1. ALEVE [Suspect]
     Active Substance: NAPROXEN SODIUM
     Indication: FRACTURE PAIN
     Dosage: UNK, ONCE DAILY
     Route: 048
     Dates: end: 20151013
  2. SYNTHROID [Concomitant]
     Active Substance: LEVOTHYROXINE SODIUM

REACTIONS (4)
  - Product use issue [None]
  - Dizziness [None]
  - Vertigo [None]
  - Haematochezia [None]

NARRATIVE: CASE EVENT DATE: 20151013
